FAERS Safety Report 4578955-4 (Version None)
Quarter: 2005Q1

REPORT INFORMATION
  Report Type: 
  Country: None (occurrence: None)
  Receive Date: 20050211
  Receipt Date: 20050203
  Transmission Date: 20050727
  Serious: Yes (Other)
  Sender: FDA-Public Use
  Company Number: FR-MERCK-0502USA00448

PATIENT
  Age: 75 Year
  Sex: Male

DRUGS (11)
  1. BRONCHODUAL [Concomitant]
     Route: 048
  2. OMIX [Concomitant]
     Route: 048
  3. ZOCOR [Suspect]
     Route: 048
     Dates: end: 20041225
  4. ALDACTONE [Suspect]
     Route: 048
     Dates: end: 20041229
  5. COUMADIN [Suspect]
     Route: 048
     Dates: start: 20040815
  6. TADENAN [Suspect]
     Route: 048
     Dates: end: 20041223
  7. DUTASTERIDE [Suspect]
     Route: 048
     Dates: end: 20041225
  8. FUROSEMIDE [Concomitant]
     Route: 048
  9. KREDEX [Concomitant]
     Route: 048
  10. TRIATEC [Concomitant]
     Route: 048
  11. OMEPRAZOLE [Concomitant]
     Route: 048

REACTIONS (1)
  - THROMBOCYTOPENIC PURPURA [None]
